FAERS Safety Report 24582318 (Version 1)
Quarter: 2024Q4

REPORT INFORMATION
  Report Type: Report from Study
  Country: US (occurrence: US)
  Receive Date: 20241105
  Receipt Date: 20241105
  Transmission Date: 20250114
  Serious: Yes (Other)
  Sender: ALEXION PHARMACEUTICALS
  Company Number: US-AstraZeneca-CH-00726300A

PATIENT
  Age: 17 Year

DRUGS (4)
  1. SELUMETINIB [Suspect]
     Active Substance: SELUMETINIB
  2. SELUMETINIB [Suspect]
     Active Substance: SELUMETINIB
  3. SELUMETINIB [Suspect]
     Active Substance: SELUMETINIB
  4. SELUMETINIB [Suspect]
     Active Substance: SELUMETINIB

REACTIONS (1)
  - Neoplasm skin [Unknown]
